FAERS Safety Report 17080261 (Version 2)
Quarter: 2020Q1

REPORT INFORMATION
  Report Type: Spontaneous
  Country: NL (occurrence: NL)
  Receive Date: 20191127
  Receipt Date: 20200312
  Transmission Date: 20200409
  Serious: Yes (Hospitalization)
  Sender: FDA-Public Use
  Company Number: NL-TEVA-2019-NL-1141889

PATIENT
  Age: 51 Year
  Sex: Female
  Weight: 94 kg

DRUGS (6)
  1. MULTIVITAMINES VIT B EN C [Concomitant]
  2. ZOLPIDEM [Concomitant]
     Active Substance: ZOLPIDEM TARTRATE
  3. CIPROFLOXACINE [Suspect]
     Active Substance: CIPROFLOXACIN
     Indication: BACTERIAL INFECTION
     Dosage: 2X2/D , 1 DF
     Dates: start: 20191010
  4. OXYCODON [Concomitant]
     Active Substance: OXYCODONE
  5. OCAZEPAM [Concomitant]
  6. LINEZOLID FILMOMHULDE TABLET, 600 MG (MILLIGRAM) [Suspect]
     Active Substance: LINEZOLID
     Indication: BACTERIAL INFECTION
     Dosage: 2 X 1/D, 1200MG,
     Dates: start: 20191010

REACTIONS (6)
  - Pruritus [Not Recovered/Not Resolved]
  - Diarrhoea [Not Recovered/Not Resolved]
  - Insomnia [Not Recovered/Not Resolved]
  - Rash [Not Recovered/Not Resolved]
  - Tooth erosion [Not Recovered/Not Resolved]
  - Oedema [Not Recovered/Not Resolved]

NARRATIVE: CASE EVENT DATE: 20191010
